FAERS Safety Report 4398030-1 (Version None)
Quarter: 2004Q2

REPORT INFORMATION
  Report Type: 
  Country: None (occurrence: None)
  Receive Date: 20040621
  Receipt Date: 20040128
  Transmission Date: 20050107
  Serious: Yes (Other)
  Sender: FDA-Public Use
  Company Number: USA-2003-0009131

PATIENT
  Age: 21 Year
  Sex: Male
  Weight: 83.9 kg

DRUGS (2)
  1. OXYCONTIN [Suspect]
     Dosage: 10 MG, ORAL
     Route: 047
  2. TRAZODONE HCL [Concomitant]

REACTIONS (5)
  - ARTHRALGIA [None]
  - DRUG DEPENDENCE [None]
  - EMOTIONAL DISTRESS [None]
  - PAIN [None]
  - VOMITING [None]
